FAERS Safety Report 19143579 (Version 1)
Quarter: 2021Q2

REPORT INFORMATION
  Report Type: Other
  Country: US (occurrence: US)
  Receive Date: 20210415
  Receipt Date: 20210415
  Transmission Date: 20210717
  Serious: Yes (Other)
  Sender: FDA-Public Use
  Company Number: US-B.BRAUN MEDICAL INC.-2109390

PATIENT
  Age: 27 Year
  Sex: Female

DRUGS (5)
  1. TIMOLOL. [Concomitant]
     Active Substance: TIMOLOL
  2. BRIMONIDINE [Concomitant]
     Active Substance: BRIMONIDINE TARTRATE
  3. HOMATROPINE [Concomitant]
     Active Substance: HOMATROPINE HYDROBROMIDE
  4. SODIUM CHLORIDE INJECTIONS USP 0264?7800?00 0264?7800?10 [Suspect]
     Active Substance: SODIUM CHLORIDE
     Indication: CORNEAL DISORDER
     Route: 061
  5. PREDNISOLONE. [Concomitant]
     Active Substance: PREDNISOLONE

REACTIONS (1)
  - Drug ineffective [None]
